FAERS Safety Report 7636809-0 (Version None)
Quarter: 2011Q3

REPORT INFORMATION
  Report Type: 
  Country: None (occurrence: None)
  Receive Date: 20110719
  Receipt Date: 20110712
  Transmission Date: 20111222
  Serious: Yes (Other)
  Sender: FDA-Public Use
  Company Number: 1000022136

PATIENT
  Age: 54 Year
  Sex: Female

DRUGS (5)
  1. HYDROCODONE BITARTRATE [Suspect]
     Indication: OSTEOARTHRITIS
     Dosage: 10/325 MG (3 IN 1 D)
  2. XANAX [Suspect]
     Indication: ANXIETY
     Dosage: 3 MG (1 MG, 3 IN 1 D)
  3. LYRICA [Suspect]
     Indication: OSTEOARTHRITIS
     Dosage: 200 MG (100 MG, 2 IN 1 D), ORAL
     Route: 048
  4. CELEXA [Suspect]
     Indication: ANXIETY
     Dosage: (1 IN 1 D)
  5. DILANTIN [Suspect]
     Dosage: (ONCE)

REACTIONS (6)
  - HAEMARTHROSIS [None]
  - HEARING IMPAIRED [None]
  - BACK PAIN [None]
  - MUSCLE STRAIN [None]
  - FALL [None]
  - JOINT SWELLING [None]
